FAERS Safety Report 4692408-4 (Version None)
Quarter: 2005Q2

REPORT INFORMATION
  Report Type: 
  Country: None (occurrence: None)
  Receive Date: 20050615
  Receipt Date: 20050530
  Transmission Date: 20051028
  Serious: Yes (Death)
  Sender: FDA-Public Use
  Company Number: EWC050544234

PATIENT
  Age: 39 Year
  Sex: Male
  Weight: 48 kg

DRUGS (3)
  1. GEMZAR [Suspect]
     Indication: NON-SMALL CELL LUNG CANCER STAGE IV
     Dosage: 1800 MG OTHER
     Route: 050
     Dates: start: 20050511
  2. CISPLATIN [Concomitant]
  3. ONDANSETRON HYDROCHLORIDE [Concomitant]

REACTIONS (2)
  - ATRIAL FIBRILLATION [None]
  - CARDIAC FAILURE ACUTE [None]
